FAERS Safety Report 5646506-9 (Version None)
Quarter: 2008Q1

REPORT INFORMATION
  Report Type: 
  Country: None (occurrence: None)
  Receive Date: 20080228
  Receipt Date: 20080228
  Transmission Date: 20080703
  Serious: Yes (Hospitalization)
  Sender: FDA-Public Use
  Company Number: None

PATIENT
  Sex: Male
  Weight: 63.5036 kg

DRUGS (4)
  1. RISPERDAL [Suspect]
     Indication: BIPOLAR DISORDER
     Dosage: 3MG PO PRIOR TO ADMISSION
     Route: 048
  2. COMPAZINE [Suspect]
     Indication: NAUSEA
     Dosage: 10 MG PO PRIOR TO ADMISSION
     Route: 048
  3. COMPAZINE [Suspect]
     Indication: VOMITING
     Dosage: 10 MG PO PRIOR TO ADMISSION
     Route: 048
  4. IMODIUM [Concomitant]

REACTIONS (2)
  - DYSTONIA [None]
  - JOINT STIFFNESS [None]
